FAERS Safety Report 8474438-X (Version None)
Quarter: 2012Q2

REPORT INFORMATION
  Report Type: 
  Country: None (occurrence: None)
  Receive Date: 20120628
  Receipt Date: 20120622
  Transmission Date: 20120825
  Serious: Yes (Hospitalization, Other)
  Sender: FDA-Public Use
  Company Number: PHHY2012BR054120

PATIENT
  Sex: Female

DRUGS (1)
  1. FORMOTEROL FUMARATE [Suspect]
     Dosage: UNK

REACTIONS (4)
  - PNEUMONIA [None]
  - NOSOCOMIAL INFECTION [None]
  - ERYSIPELAS [None]
  - MEMORY IMPAIRMENT [None]
